FAERS Safety Report 8233881-4 (Version None)
Quarter: 2012Q1

REPORT INFORMATION
  Report Type: 
  Country: None (occurrence: None)
  Receive Date: 20120326
  Receipt Date: 20120320
  Transmission Date: 20120608
  Serious: No
  Sender: FDA-Public Use
  Company Number: CA-JNJFOC-20120310570

PATIENT
  Sex: Female
  Weight: 76.4 kg

DRUGS (2)
  1. METHOTREXATE [Concomitant]
     Route: 065
  2. REMICADE [Suspect]
     Indication: RHEUMATOID ARTHRITIS
     Route: 042
     Dates: start: 20051120

REACTIONS (2)
  - HERPES ZOSTER [None]
  - EYE INFECTION [None]
